FAERS Safety Report 4375082-6 (Version None)
Quarter: 2004Q2

REPORT INFORMATION
  Report Type: 
  Country: None (occurrence: None)
  Receive Date: 20040603
  Receipt Date: 20040525
  Transmission Date: 20050107
  Serious: No
  Sender: FDA-Public Use
  Company Number: 2004UW11299

PATIENT
  Age: 36 Year
  Sex: Female

DRUGS (1)
  1. CRESTOR [Suspect]
     Indication: PROPHYLAXIS
     Dosage: SEE IMAGE
     Route: 048
     Dates: start: 20040401

REACTIONS (4)
  - HEADACHE [None]
  - MYALGIA [None]
  - PERICARDIAL EFFUSION [None]
  - PERICARDITIS [None]
